FAERS Safety Report 4900803-0 (Version None)
Quarter: 2006Q1

REPORT INFORMATION
  Report Type: 
  Country: None (occurrence: None)
  Receive Date: 20060201
  Receipt Date: 20060117
  Transmission Date: 20060701
  Serious: Yes (Hospitalization)
  Sender: FDA-Public Use
  Company Number: AZAUK200400136

PATIENT
  Age: 68 Year
  Sex: Male
  Weight: 91.9 kg

DRUGS (4)
  1. AZACITIDINE (AZACITIDINE) (INJECTION) [Suspect]
     Indication: MYELODYSPLASTIC SYNDROME
     Dosage: 75 MG/M2 (165 MG, DAILY X 7 DAYS, SUBCUTANEOUS
     Route: 058
     Dates: start: 20040910, end: 20041006
  2. NIFEDIPINE [Concomitant]
  3. BENDROFLUAZIDE (BENDROFLUMETHIAZOLE) [Concomitant]
  4. ATORVASTATIN CALCIUM [Concomitant]

REACTIONS (2)
  - BENIGN PROSTATIC HYPERPLASIA [None]
  - PANCYTOPENIA [None]
